FAERS Safety Report 8607408-9 (Version None)
Quarter: 2012Q3

REPORT INFORMATION
  Report Type: 
  Country: None (occurrence: None)
  Receive Date: 20120809
  Receipt Date: 20120809
  Transmission Date: 20120928
  Serious: No
  Sender: FDA-Public Use
  Company Number: None

PATIENT
  Age: 29 Year
  Sex: Male
  Weight: 99.6 kg

DRUGS (1)
  1. HYLAN G-F 20 [Suspect]
     Dosage: 48 MG ONCE  OTHER
     Route: 050
     Dates: start: 20110822, end: 20110822

REACTIONS (2)
  - JOINT SWELLING [None]
  - MOBILITY DECREASED [None]
